FAERS Safety Report 19056975 (Version 6)
Quarter: 2021Q2

REPORT INFORMATION
  Report Type: Spontaneous
  Country: DE (occurrence: DE)
  Receive Date: 20210325
  Receipt Date: 20210412
  Transmission Date: 20210717
  Serious: Yes (Death)
  Sender: FDA-Public Use
  Company Number: DE-PFIZER INC-2021292572

PATIENT
  Age: 80 Year
  Sex: Male
  Weight: 69 kg

DRUGS (44)
  1. AMIODARONE [Suspect]
     Active Substance: AMIODARONE
     Indication: VENTRICULAR FIBRILLATION
     Dosage: 150 MG, 1X/DAY
  2. FLUTICASONE FUROATE/VILANTEROL TRIFENATATE [Suspect]
     Active Substance: FLUTICASONE FUROATE\VILANTEROL TRIFENATATE
     Dosage: UNK
  3. ONDANSETRON HYDROCHLORIDE. [Suspect]
     Active Substance: ONDANSETRON HYDROCHLORIDE
     Indication: NAUSEA
     Dosage: 12 MG, 3X/DAY FREQ:8 H;
  4. POTASSIUM CHLORIDE. [Concomitant]
     Active Substance: POTASSIUM CHLORIDE
     Dosage: UNK
  5. LANSOPRAZOLE. [Suspect]
     Active Substance: LANSOPRAZOLE
     Indication: ANTACID THERAPY
     Dosage: 30 MG, 1X/DAY
  6. HYDROMORPHONE [Suspect]
     Active Substance: HYDROMORPHONE
     Dosage: 1 MG EVERY 4 HOURS
     Route: 065
  7. PYRIDOXINE HYDROCHLORIDE. [Suspect]
     Active Substance: PYRIDOXINE HYDROCHLORIDE
     Indication: VITAMIN SUPPLEMENTATION
     Dosage: UNK
  8. LANTHANUM CARBONATE. [Suspect]
     Active Substance: LANTHANUM CARBONATE
     Indication: BLOOD PHOSPHORUS INCREASED
     Dosage: 500 MG
  9. ARANESP [Suspect]
     Active Substance: DARBEPOETIN ALFA
     Indication: ANAEMIA
     Dosage: 0.71 UG FREQ:2 WK;
  10. ARANESP [Suspect]
     Active Substance: DARBEPOETIN ALFA
     Dosage: 10 MG EVERY 2 WEEKS
     Route: 065
  11. SODIUM PICOSULFATE [Suspect]
     Active Substance: SODIUM PICOSULFATE
     Indication: CONSTIPATION
     Dosage: UNK
     Route: 065
  12. INSULIN DEGLUDEC [Suspect]
     Active Substance: INSULIN DEGLUDEC
     Indication: DIABETES MELLITUS
     Dosage: UNK
  13. NOREPINEPHRINE. [Suspect]
     Active Substance: NOREPINEPHRINE
     Indication: STRESS
     Dosage: UNK
  14. MACROGOL 3350 [Suspect]
     Active Substance: POLYETHYLENE GLYCOL 3350
     Indication: CONSTIPATION
     Dosage: 17 G, 1X/DAY
  15. PARACETAMOL [Suspect]
     Active Substance: ACETAMINOPHEN
     Indication: ANALGESIC THERAPY
     Dosage: 650 MG, 1X/DAY
  16. BETAMETHASONE. [Suspect]
     Active Substance: BETAMETHASONE
     Indication: SWELLING
     Dosage: UNK
  17. SODIUM FERRIC GLUCONATE COMPLEX. [Suspect]
     Active Substance: SODIUM FERRIC GLUCONATE COMPLEX
     Indication: IRON DEFICIENCY
     Dosage: 4.64 MG FREQ:4 WK;
     Route: 065
  18. WARFARIN [Suspect]
     Active Substance: WARFARIN
     Indication: THROMBOSIS
     Dosage: 2 G, 1X/DAY
  19. DALTEPARIN SODIUM [Suspect]
     Active Substance: DALTEPARIN SODIUM
     Indication: PULMONARY EMBOLISM
     Dosage: UNK
  20. CALCITRIOL. [Suspect]
     Active Substance: CALCITRIOL
     Indication: VITAMIN D ABNORMAL
     Dosage: 0.25 UG, 1X/DAY
  21. DULCOLAX [SODIUM PICOSULFATE] [Suspect]
     Active Substance: SODIUM PICOSULFATE
     Indication: CONSTIPATION
     Dosage: 10 MG
     Route: 065
  22. ASCORBIC ACID. [Concomitant]
     Active Substance: ASCORBIC ACID
     Dosage: UNK
  23. INSULIN ASPART [Suspect]
     Active Substance: INSULIN ASPART
     Indication: DIABETES MELLITUS
     Dosage: UNK
  24. SIMVASTATIN. [Suspect]
     Active Substance: SIMVASTATIN
     Indication: BLOOD CHOLESTEROL INCREASED
     Dosage: 40 MG, 1X/DAY
  25. VASOPRESSIN. [Suspect]
     Active Substance: VASOPRESSIN
     Indication: DRUG THERAPY
     Dosage: UNK
  26. UMECLIDINIUM BROMIDE [Suspect]
     Active Substance: UMECLIDINIUM BROMIDE
     Indication: DYSPNOEA
     Dosage: 1 IU, 1X/DAY
  27. BETACAROTENE [Concomitant]
     Active Substance: .BETA.-CAROTENE
     Dosage: UNK
  28. DULCOLAX (BISACODYL) [Suspect]
     Active Substance: BISACODYL
     Indication: CONSTIPATION
     Dosage: 10 MG
  29. CEFTRIAXONE. [Suspect]
     Active Substance: CEFTRIAXONE
     Indication: BACTERIAL INFECTION
     Dosage: 2 G, 1X/DAY
  30. MELATONIN [Suspect]
     Active Substance: MELATONIN
     Indication: SLEEP DISORDER THERAPY
     Dosage: 3 MG, 1X/DAY
  31. HYDROMORPHONE [Suspect]
     Active Substance: HYDROMORPHONE
     Indication: ANALGESIC THERAPY
     Dosage: 6 MG, 4X/DAY
  32. SODIUM PHOSPHATE MONOBASIC [Suspect]
     Active Substance: SODIUM PHOSPHATE, MONOBASIC
     Indication: CONSTIPATION
     Dosage: 133 ML
  33. VILANTEROL TRIFENATATE [Suspect]
     Active Substance: VILANTEROL TRIFENATATE
     Dosage: UNK
  34. DOBUTAMINE [Suspect]
     Active Substance: DOBUTAMINE HYDROCHLORIDE
     Indication: CARDIOGENIC SHOCK
     Dosage: UNK
  35. HEPARIN SODIUM. [Suspect]
     Active Substance: HEPARIN SODIUM
     Indication: ANTICOAGULANT THERAPY
     Dosage: 50 ML
  36. METRONIDAZOLE. [Suspect]
     Active Substance: METRONIDAZOLE
     Indication: BACTERIAL INFECTION
     Dosage: 500 MG, 3X/DAY, FREQ:8 H;
  37. GABAPENTIN. [Suspect]
     Active Substance: GABAPENTIN
     Indication: NEURALGIA
     Dosage: 100 MG, 1X/DAY
  38. GLUCOSE [Suspect]
     Active Substance: DEXTROSE
     Indication: NUTRITIONAL SUPPLEMENTATION
     Dosage: 12.5 G
  39. ALLOPURINOL. [Suspect]
     Active Substance: ALLOPURINOL
     Indication: BLOOD URIC ACID INCREASED
     Dosage: 1 DF, 1X/DAY
  40. SODIUM CITRATE. [Suspect]
     Active Substance: SODIUM CITRATE
     Indication: THROMBOSIS
     Dosage: 2.5 ML
  41. PHYTOMENADIONE [Suspect]
     Active Substance: PHYTONADIONE
     Indication: VITAMIN SUPPLEMENTATION
     Dosage: 5 MG
  42. ONDANSETRON HYDROCHLORIDE. [Suspect]
     Active Substance: ONDANSETRON HYDROCHLORIDE
     Indication: VOMITING
     Dosage: 40 MG, 3X/DAY  (EVERY 8 HOURS)
  43. ATROVENT [Suspect]
     Active Substance: IPRATROPIUM BROMIDE
     Indication: DYSPNOEA
     Dosage: UNK
  44. SALBUTAMOL [Suspect]
     Active Substance: ALBUTEROL
     Indication: CHRONIC OBSTRUCTIVE PULMONARY DISEASE
     Dosage: UNK

REACTIONS (14)
  - Abdominal distension [Fatal]
  - Multiple organ dysfunction syndrome [Fatal]
  - Appendicolith [Fatal]
  - Sepsis [Fatal]
  - Vomiting [Fatal]
  - Nausea [Fatal]
  - General physical health deterioration [Fatal]
  - Constipation [Fatal]
  - Stress [Fatal]
  - Cardiogenic shock [Fatal]
  - Hyponatraemia [Fatal]
  - Abdominal pain [Fatal]
  - Ascites [Fatal]
  - Appendicitis [Fatal]
